FAERS Safety Report 15591544 (Version 2)
Quarter: 2018Q4

REPORT INFORMATION
  Report Type: Report from Study
  Country: FR (occurrence: FR)
  Receive Date: 20181107
  Receipt Date: 20181108
  Transmission Date: 20190205
  Serious: Yes (Other)
  Sender: FDA-Public Use
  Company Number: FR-TEVA-2018-FR-971378

PATIENT
  Sex: Female

DRUGS (1)
  1. ANTADYS [Suspect]
     Active Substance: FLURBIPROFEN
     Route: 065

REACTIONS (4)
  - Hot flush [Unknown]
  - Dizziness [Unknown]
  - Product use issue [Unknown]
  - Syncope [Unknown]
